FAERS Safety Report 5422523-9 (Version None)
Quarter: 2007Q3

REPORT INFORMATION
  Report Type: 
  Country: None (occurrence: None)
  Receive Date: 20070822
  Receipt Date: 20070814
  Transmission Date: 20080115
  Serious: Yes (Hospitalization)
  Sender: FDA-Public Use
  Company Number: ES-ELI_LILLY_AND_COMPANY-ES200708003809

PATIENT
  Age: 71 Year
  Sex: Female

DRUGS (8)
  1. FORTEO [Suspect]
     Indication: OSTEOPOROSIS
     Dosage: 20 UG, UNKNOWN
     Route: 058
     Dates: start: 20061115
  2. IDEOS [Concomitant]
     Dosage: UNK, UNKNOWN
     Route: 065
  3. DIANBEN [Concomitant]
     Dosage: 850 MG, UNKNOWN
     Route: 065
  4. NOVORAPID [Concomitant]
     Dosage: UNK, UNKNOWN
     Route: 065
  5. NOLOTIL [Concomitant]
     Dosage: UNK, UNKNOWN
     Route: 065
  6. PLANTABEN [Concomitant]
     Dosage: UNK, UNKNOWN
     Route: 065
  7. RETIMAX [Concomitant]
     Dosage: UNK, UNKNOWN
     Route: 065
  8. SINTROM [Concomitant]
     Dosage: UNK, UNKNOWN
     Route: 065

REACTIONS (2)
  - FALL [None]
  - FOOT FRACTURE [None]
